FAERS Safety Report 6032911-8 (Version None)
Quarter: 2009Q1

REPORT INFORMATION
  Report Type: 
  Country: None (occurrence: None)
  Receive Date: 20090105
  Receipt Date: 20080117
  Transmission Date: 20090719
  Serious: Yes (Life-Threatening, Hospitalization)
  Sender: FDA-Public Use
  Company Number: US-000122

PATIENT
  Age: 54 Year
  Sex: Female
  Weight: 71.8 kg

DRUGS (1)
  1. PROHANCE [Suspect]
     Indication: NUCLEAR MAGNETIC RESONANCE IMAGING
     Dosage: 15ML QD INTRAVENOUS
     Route: 042
     Dates: start: 20080116, end: 20080116

REACTIONS (2)
  - ANAPHYLACTIC SHOCK [None]
  - RESPIRATORY DISTRESS [None]
